FAERS Safety Report 7681410-6 (Version None)
Quarter: 2011Q3

REPORT INFORMATION
  Report Type: 
  Country: None (occurrence: None)
  Receive Date: 20110812
  Receipt Date: 20110808
  Transmission Date: 20111222
  Serious: Yes (Other)
  Sender: FDA-Public Use
  Company Number: US-CEPHALON-2008000498

PATIENT
  Sex: Female
  Weight: 89 kg

DRUGS (6)
  1. ADDERALL 5 [Concomitant]
     Indication: ATTENTION DEFICIT/HYPERACTIVITY DISORDER
     Route: 048
  2. PROVIGIL [Suspect]
     Indication: SOMNOLENCE
     Route: 048
     Dates: start: 20080601, end: 20081001
  3. CLONAZEPAM [Concomitant]
     Indication: ANXIETY
     Route: 048
  4. SYNTHROID [Concomitant]
     Indication: AUTOIMMUNE THYROIDITIS
     Route: 048
  5. YAZ [Concomitant]
     Indication: ORAL CONTRACEPTION
     Route: 048
  6. WELLBUTRIN [Concomitant]
     Indication: DEPRESSION

REACTIONS (4)
  - VISUAL IMPAIRMENT [None]
  - VISUAL ACUITY REDUCED [None]
  - VISION BLURRED [None]
  - VISUAL FIELD DEFECT [None]
